FAERS Safety Report 11075277 (Version 4)
Quarter: 2016Q1

REPORT INFORMATION
  Report Type: Report from Study
  Country: CA (occurrence: CA)
  Receive Date: 20150429
  Receipt Date: 20160211
  Transmission Date: 20160525
  Serious: Yes (Other)
  Sender: FDA-Public Use
  Company Number: CA-SA-2015SA045176

PATIENT
  Age: 36 Year
  Sex: Female
  Weight: 87 kg

DRUGS (3)
  1. AUBAGIO [Suspect]
     Active Substance: TERIFLUNOMIDE
     Indication: RELAPSING-REMITTING MULTIPLE SCLEROSIS
     Route: 048
     Dates: start: 20150323, end: 20150516
  2. MODAFINIL. [Concomitant]
     Active Substance: MODAFINIL
     Indication: FATIGUE
     Dosage: FREQUENCY: QD PRN?STRENGHT: 100 MG
     Route: 048
     Dates: start: 2012
  3. VITAMIN D [Concomitant]
     Active Substance: CHOLECALCIFEROL
     Indication: SUPPLEMENTATION THERAPY
     Dosage: FREQUENCY: QD PRN
     Route: 048
     Dates: start: 2012

REACTIONS (12)
  - Alopecia [Recovering/Resolving]
  - Nasopharyngitis [Recovered/Resolved]
  - Pulmonary congestion [Recovered/Resolved]
  - Ear infection [Not Recovered/Not Resolved]
  - Lower respiratory tract infection [Recovered/Resolved]
  - Nausea [Recovered/Resolved]
  - Pyrexia [Recovered/Resolved]
  - Sinus headache [Recovering/Resolving]
  - Pneumonia [Recovered/Resolved]
  - Cough [Recovered/Resolved]
  - Paranasal sinus discomfort [Recovering/Resolving]
  - Rash [Recovered/Resolved]

NARRATIVE: CASE EVENT DATE: 2015
